FAERS Safety Report 5922364-X (Version None)
Quarter: 2008Q4

REPORT INFORMATION
  Report Type: 
  Country: None (occurrence: None)
  Receive Date: 20081017
  Receipt Date: 20081007
  Transmission Date: 20090506
  Serious: No
  Sender: FDA-Public Use
  Company Number: JP-MERCK-0807USA04622

PATIENT
  Age: 68 Year
  Sex: Male

DRUGS (4)
  1. SINGULAIR [Suspect]
     Indication: ASTHMA
     Route: 048
     Dates: start: 20070417, end: 20080718
  2. QVAR 40 [Concomitant]
     Dates: start: 20070417
  3. THEO-DUR [Concomitant]
     Route: 048
     Dates: start: 20070417
  4. HOKUNALIN [Concomitant]
     Route: 061
     Dates: start: 20070417

REACTIONS (2)
  - ANAEMIA HAEMOLYTIC AUTOIMMUNE [None]
  - JAUNDICE [None]
